FAERS Safety Report 16149459 (Version 1)
Quarter: 2019Q2

REPORT INFORMATION
  Report Type: Spontaneous
  Country: FR (occurrence: FR)
  Receive Date: 20190402
  Receipt Date: 20190402
  Transmission Date: 20190711
  Serious: Yes (Death)
  Sender: FDA-Public Use
  Company Number: FR-NAPPMUNDI-GBR-2019-0065408

PATIENT
  Age: 79 Year
  Sex: Male

DRUGS (13)
  1. RIVASTIGMINE. [Suspect]
     Active Substance: RIVASTIGMINE
     Indication: DEMENTIA
     Dosage: 1 DF, DAILY (9.5 MG/24 HEURES)
     Route: 062
  2. CLOZAPINE. [Suspect]
     Active Substance: CLOZAPINE
     Indication: AGITATION
     Dosage: 1 DF, DAILY (1 CP LE SOIR)
     Route: 048
  3. OXYNORMORO [Suspect]
     Active Substance: OXYCODONE HYDROCHLORIDE
     Indication: PAIN
     Dosage: 4 DF, DAILY (5MG STRENGTH; SI DOULEUR)
     Route: 048
     Dates: start: 20190204
  4. ALPRAZOLAM. [Suspect]
     Active Substance: ALPRAZOLAM
     Indication: ANXIETY
     Dosage: 1 DF, DAILY
     Route: 048
  5. SINEMET PLUS [Suspect]
     Active Substance: CARBIDOPA\LEVODOPA
     Indication: PARKINSON^S DISEASE
     Dosage: 2 DF, DAILY (1CP MATIN ET 1CP MIDI)
     Route: 048
  6. ACUPAN [Suspect]
     Active Substance: NEFOPAM HYDROCHLORIDE
     Indication: PAIN
     Dosage: 4 DF, DAILY
     Route: 060
     Dates: start: 20190204
  7. ESCITALOPRAM OXALATE. [Suspect]
     Active Substance: ESCITALOPRAM OXALATE
     Indication: DEPRESSION
     Dosage: 1 DF, DAILY (1 CP MATIN)
     Route: 048
  8. MONOCRIXO [Suspect]
     Active Substance: TRAMADOL HYDROCHLORIDE
     Indication: PAIN
     Dosage: UNK
     Route: 048
  9. TRAMADOL AND ACETAMINOPHEN [Suspect]
     Active Substance: ACETAMINOPHEN\TRAMADOL HYDROCHLORIDE
     Indication: PAIN
     Dosage: UNK
     Route: 048
  10. MODOPAR [Suspect]
     Active Substance: BENSERAZIDE HYDROCHLORIDE\LEVODOPA
     Indication: PARKINSON^S DISEASE
     Dosage: 4 DF, DAILY (2CP A 16H ET 2CP LE SOIR)
     Route: 048
     Dates: start: 20190125, end: 20190205
  11. DOLIPRANE [Suspect]
     Active Substance: ACETAMINOPHEN
     Indication: PAIN
     Dosage: UNK
     Route: 048
  12. DUTASTERIDE. [Suspect]
     Active Substance: DUTASTERIDE
     Indication: BENIGN PROSTATIC HYPERPLASIA
     Dosage: 1 DF, DAILY
     Route: 048
  13. LEVODOPA-CARBIDOPA [Suspect]
     Active Substance: CARBIDOPA\LEVODOPA
     Indication: PARKINSON^S DISEASE
     Dosage: 1 DF, DAILY (1 CP AU COUCHER)
     Route: 048
     Dates: start: 20190125

REACTIONS (3)
  - Bedridden [Fatal]
  - Pain [Fatal]
  - Malaise [Fatal]

NARRATIVE: CASE EVENT DATE: 20190202
